FAERS Safety Report 25720020 (Version 1)
Quarter: 2025Q3

REPORT INFORMATION
  Report Type: Spontaneous
  Country: US (occurrence: None)
  Receive Date: 20250825
  Receipt Date: 20250825
  Transmission Date: 20251021
  Serious: No
  Sender: ENCUBE ETHICALS PVT. LTD.
  Company Number: US-Encube-002170

PATIENT
  Age: 59 Year

DRUGS (1)
  1. CICLOPIROX [Suspect]
     Active Substance: CICLOPIROX
     Indication: Product used for unknown indication
     Dates: start: 2025, end: 2025

REACTIONS (1)
  - Skin discolouration [Unknown]

NARRATIVE: CASE EVENT DATE: 20250101
